FAERS Safety Report 4290162-1 (Version None)
Quarter: 2004Q1

REPORT INFORMATION
  Report Type: 
  Country: None (occurrence: None)
  Receive Date: 20040206
  Receipt Date: 20040123
  Transmission Date: 20041129
  Serious: Yes (Disabling)
  Sender: FDA-Public Use
  Company Number: S04-NLD-00368-01

PATIENT
  Age: 30 Year
  Sex: Female

DRUGS (1)
  1. CIPRAMIL (CITALOPRAM HYDROBROMIDE) [Suspect]
     Indication: DEPRESSION
     Dosage: 30 MG QD PO
     Route: 048
     Dates: start: 20010327, end: 20020422

REACTIONS (1)
  - ATROPHIC VULVOVAGINITIS [None]
